FAERS Safety Report 10153842 (Version 1)
Quarter: 2014Q2

REPORT INFORMATION
  Report Type: Spontaneous
  Country: CN (occurrence: CN)
  Receive Date: 20140506
  Receipt Date: 20140506
  Transmission Date: 20141212
  Serious: Yes (Other)
  Sender: FDA-Public Use
  Company Number: CN-PFIZER INC-2014123245

PATIENT
  Age: 58 Year
  Sex: Male

DRUGS (1)
  1. CORDARONE [Suspect]
     Indication: CORONARY ARTERY DISEASE
     Dosage: 0.2 G, 2X/DAY
     Route: 048
     Dates: start: 20131119, end: 20131128

REACTIONS (3)
  - Ventricular extrasystoles [Unknown]
  - Abdominal distension [Recovered/Resolved]
  - Nausea [Recovered/Resolved]
